FAERS Safety Report 11105521 (Version 4)
Quarter: 2015Q3

REPORT INFORMATION
  Report Type: Spontaneous
  Country: US (occurrence: US)
  Receive Date: 20150512
  Receipt Date: 20150707
  Transmission Date: 20151125
  Serious: Yes (Hospitalization, Other)
  Sender: FDA-Public Use
  Company Number: US-UCBSA-2015014069

PATIENT
  Age: 0 Year
  Sex: Male
  Weight: 2.7 kg

DRUGS (3)
  1. CIMZIA [Suspect]
     Active Substance: CERTOLIZUMAB PEGOL
     Dosage: 400, EV 4 WEEKS
     Route: 063
     Dates: start: 20150521
  2. PREDNISONE. [Concomitant]
     Active Substance: PREDNISONE
     Indication: RHEUMATOID ARTHRITIS
     Dosage: 5 MG, ONCE DAILY (QD)
     Route: 064
     Dates: end: 20150413
  3. CIMZIA [Suspect]
     Active Substance: CERTOLIZUMAB PEGOL
     Indication: RHEUMATOID ARTHRITIS
     Dosage: 400, EV 2 WEEKS(QOW)
     Route: 015
     Dates: end: 2014

REACTIONS (6)
  - Pneumothorax [Recovered/Resolved]
  - Foetal exposure during pregnancy [Unknown]
  - Meconium aspiration syndrome [Recovered/Resolved]
  - Exposure during breast feeding [Unknown]
  - Umbilical cord around neck [Recovered/Resolved]
  - Jaundice neonatal [Recovering/Resolving]

NARRATIVE: CASE EVENT DATE: 2014
